FAERS Safety Report 25031775 (Version 1)
Quarter: 2025Q1

REPORT INFORMATION
  Report Type: Spontaneous
  Country: US (occurrence: None)
  Receive Date: 20250302
  Receipt Date: 20250302
  Transmission Date: 20250409
  Serious: Yes (Disabling)
  Sender: FDA-CTU
  Company Number: None

PATIENT
  Age: 56 Year
  Sex: Male
  Weight: 130.5 kg

DRUGS (5)
  1. BELBUCA [Suspect]
     Active Substance: BUPRENORPHINE HYDROCHLORIDE
     Indication: Pain
  2. GABAPENTIN [Concomitant]
     Active Substance: GABAPENTIN
  3. DULOXETINE [Concomitant]
     Active Substance: DULOXETINE
  4. BELBUCA [Concomitant]
     Active Substance: BUPRENORPHINE HYDROCHLORIDE
  5. ADVIL [Concomitant]
     Active Substance: IBUPROFEN

REACTIONS (9)
  - Headache [None]
  - Swelling [None]
  - Toothache [None]
  - Tooth fracture [None]
  - Memory impairment [None]
  - Insomnia [None]
  - Arthralgia [None]
  - Loss of libido [None]
  - Hypophagia [None]

NARRATIVE: CASE EVENT DATE: 20250226
